FAERS Safety Report 17051122 (Version 1)
Quarter: 2019Q4

REPORT INFORMATION
  Report Type: Spontaneous
  Country: IN (occurrence: IN)
  Receive Date: 20191120
  Receipt Date: 20191120
  Transmission Date: 20200122
  Serious: Yes (Hospitalization, Other)
  Sender: FDA-Public Use
  Company Number: IN-SA-2019SA312631

PATIENT
  Age: 53 Year
  Sex: Male

DRUGS (6)
  1. ISONIAZID. [Suspect]
     Active Substance: ISONIAZID
     Indication: MENINGOENCEPHALITIS BACTERIAL
     Dosage: 300 MG
  2. RIFAMPICIN [Suspect]
     Active Substance: RIFAMPIN
     Indication: MENINGOENCEPHALITIS BACTERIAL
     Dosage: 450 MG
  3. ISONIAZID. [Suspect]
     Active Substance: ISONIAZID
     Indication: TUBERCULOSIS
  4. RIFAMPICIN [Suspect]
     Active Substance: RIFAMPIN
     Indication: TUBERCULOSIS
  5. ETHAMBUTOL [Suspect]
     Active Substance: ETHAMBUTOL HYDROCHLORIDE
     Indication: TUBERCULOSIS
     Dosage: 800 MG
  6. ETHAMBUTOL [Suspect]
     Active Substance: ETHAMBUTOL HYDROCHLORIDE
     Indication: MENINGOENCEPHALITIS BACTERIAL

REACTIONS (13)
  - Vomiting [Recovering/Resolving]
  - Hyperbilirubinaemia [Recovering/Resolving]
  - Hepatitis fulminant [Recovering/Resolving]
  - Malaise [Recovering/Resolving]
  - Abdominal pain upper [Recovering/Resolving]
  - Hyperammonaemia [Recovering/Resolving]
  - Loss of consciousness [Recovering/Resolving]
  - Abdominal distension [Recovering/Resolving]
  - Epigastric discomfort [Recovering/Resolving]
  - Ocular icterus [Recovering/Resolving]
  - Altered state of consciousness [Recovering/Resolving]
  - Somnolence [Recovering/Resolving]
  - Pallor [Recovering/Resolving]
